FAERS Safety Report 15947916 (Version 6)
Quarter: 2025Q3

REPORT INFORMATION
  Report Type: Spontaneous
  Country: EU (occurrence: EU)
  Receive Date: 20190212
  Receipt Date: 20250720
  Transmission Date: 20251021
  Serious: Yes (Life-Threatening, Hospitalization, Other)
  Sender: AUROBINDO
  Company Number: None

PATIENT
  Age: 29 Year
  Sex: Female

DRUGS (5)
  1. SERTRALINE [Suspect]
     Active Substance: SERTRALINE HYDROCHLORIDE
     Indication: Depression
     Route: 065
  2. CARBOMER [Suspect]
     Active Substance: CARBOMER
     Indication: Eye lubrication therapy
     Route: 065
  3. LEVOTHYROXINE [Suspect]
     Active Substance: LEVOTHYROXINE
     Indication: Product used for unknown indication
     Route: 065
  4. METHYLPREDNISOLONE [Suspect]
     Active Substance: METHYLPREDNISOLONE
     Indication: Product used for unknown indication
     Route: 042
  5. METHIMAZOLE [Suspect]
     Active Substance: METHIMAZOLE
     Indication: Hyperthyroidism
     Route: 065

REACTIONS (8)
  - Suicide attempt [Recovered/Resolved]
  - Therapeutic product effect incomplete [Recovered/Resolved]
  - Treatment noncompliance [Recovered/Resolved]
  - Drug withdrawal syndrome [Recovered/Resolved]
  - Failure to suspend medication [Recovered/Resolved]
  - Disease progression [Unknown]
  - Exophthalmos [Unknown]
  - Depression [Unknown]
